FAERS Safety Report 26048661 (Version 1)
Quarter: 2025Q4

REPORT INFORMATION
  Report Type: Report from Study
  Country: PK (occurrence: PK)
  Receive Date: 20251114
  Receipt Date: 20251114
  Transmission Date: 20260118
  Serious: Yes (Other)
  Sender: ROCHE
  Company Number: PK-ROCHE-10000433781

PATIENT
  Age: 59 Year
  Sex: Female

DRUGS (2)
  1. RITUXIMAB [Suspect]
     Active Substance: RITUXIMAB
     Indication: Diffuse large B-cell lymphoma
     Dosage: TOTAL 8 CYCLES HAVE BEEN INFUSED TO THE PATIENT TILL 9TH SEPTEMBER 2025
     Route: 042
  2. RITUXIMAB [Suspect]
     Active Substance: RITUXIMAB
     Route: 042

REACTIONS (2)
  - Diffuse large B-cell lymphoma recurrent [Unknown]
  - Weight decreased [Unknown]

NARRATIVE: CASE EVENT DATE: 20251015
